FAERS Safety Report 4288740-9 (Version None)
Quarter: 2004Q1

REPORT INFORMATION
  Report Type: 
  Country: None (occurrence: None)
  Receive Date: 20040205
  Receipt Date: 20040126
  Transmission Date: 20041129
  Serious: Yes (Other)
  Sender: FDA-Public Use
  Company Number: NO-JNJFOC-20030801522

PATIENT
  Age: 55 Year
  Sex: Female

DRUGS (3)
  1. REMICADE [Suspect]
     Indication: PYODERMA GANGRENOSUM
     Dosage: 5 MG/KG 1 IN 1 DAY, INTRAVENOUS
     Route: 042
     Dates: start: 20030404, end: 20030404
  2. REMICADE [Suspect]
     Indication: PYODERMA GANGRENOSUM
     Dosage: 5 MG/KG 1 IN 1 DAY, INTRAVENOUS
     Route: 042
     Dates: start: 20030425, end: 20030425
  3. REMICADE [Suspect]
     Indication: PYODERMA GANGRENOSUM
     Dosage: 5 MG/KG 1 IN 1 DAY, INTRAVENOUS
     Route: 042
     Dates: start: 20030613, end: 20030613

REACTIONS (9)
  - ABSCESS [None]
  - BLOOD PRESSURE DECREASED [None]
  - DEEP VEIN THROMBOSIS [None]
  - ESCHERICHIA INFECTION [None]
  - FLUSHING [None]
  - HEART RATE INCREASED [None]
  - HYPERHIDROSIS [None]
  - SJOGREN'S SYNDROME [None]
  - THROAT TIGHTNESS [None]
